FAERS Safety Report 4291712-1 (Version None)
Quarter: 2004Q1

REPORT INFORMATION
  Report Type: 
  Country: None (occurrence: None)
  Receive Date: 20040211
  Receipt Date: 20021230
  Transmission Date: 20041129
  Serious: No
  Sender: FDA-Public Use
  Company Number: US-GLAXOSMITHKLINE-A0390253A

PATIENT
  Age: 29 Year
  Sex: Female

DRUGS (1)
  1. IMITREX [Suspect]
     Indication: MIGRAINE
     Dosage: 6MG SINGLE DOSE
     Route: 030
     Dates: start: 20021228, end: 20021228

REACTIONS (2)
  - INJECTION SITE PAIN [None]
  - MEDICATION ERROR [None]
